FAERS Safety Report 6219764-X (Version None)
Quarter: 2009Q2

REPORT INFORMATION
  Report Type: 
  Country: None (occurrence: None)
  Receive Date: 20090609
  Receipt Date: 20090601
  Transmission Date: 20091009
  Serious: Yes (Hospitalization)
  Sender: FDA-Public Use
  Company Number: A0787715A

PATIENT
  Age: 39 Year
  Sex: Female

DRUGS (4)
  1. LAMICTAL [Suspect]
     Indication: BIPOLAR DISORDER
     Dosage: 25MG TWICE PER DAY
     Route: 048
     Dates: start: 20080601, end: 20080601
  2. PAROXETINE HCL [Suspect]
     Indication: DEPRESSION
     Dosage: 30MG PER DAY
     Route: 048
     Dates: start: 20080601, end: 20090522
  3. LORAZEPAM [Concomitant]
  4. LEXAPRO [Concomitant]

REACTIONS (4)
  - ABNORMAL DREAMS [None]
  - ANGER [None]
  - CRYING [None]
  - SUICIDAL IDEATION [None]
